FAERS Safety Report 15275902 (Version 1)
Quarter: 2018Q3

REPORT INFORMATION
  Report Type: Spontaneous
  Country: US (occurrence: US)
  Receive Date: 20180727
  Receipt Date: 20180727
  Transmission Date: 20181010
  Serious: No
  Sender: FDA-Public Use
  Company Number: None

PATIENT
  Age: 33 Year
  Sex: Female

DRUGS (16)
  1. MAGNESIUM OXIDE. [Concomitant]
     Active Substance: MAGNESIUM OXIDE
  2. ASPIRIN. [Concomitant]
     Active Substance: ASPIRIN
  3. DRONABINOL. [Concomitant]
     Active Substance: DRONABINOL
  4. DULOXETINE. [Concomitant]
     Active Substance: DULOXETINE
  5. FLUDROCORTISONE [Concomitant]
     Active Substance: FLUDROCORTISONE
  6. METOPROLOL. [Concomitant]
     Active Substance: METOPROLOL
  7. FAMOTIDINE. [Concomitant]
     Active Substance: FAMOTIDINE
  8. MIRTAZAPINE. [Concomitant]
     Active Substance: MIRTAZAPINE
  9. VORICONAZOLE. [Concomitant]
     Active Substance: VORICONAZOLE
  10. ATOVAQUONE. [Concomitant]
     Active Substance: ATOVAQUONE
  11. PREDNISONE. [Concomitant]
     Active Substance: PREDNISONE
  12. TOLTERODINE [Concomitant]
     Active Substance: TOLTERODINE
  13. AMIKACIN. [Suspect]
     Active Substance: AMIKACIN
     Indication: INFECTION
     Route: 042
     Dates: start: 20180226, end: 20180410
  14. TACROLIMUS. [Suspect]
     Active Substance: TACROLIMUS
     Route: 048
  15. CEFOXITIN [Concomitant]
     Active Substance: CEFOXITIN SODIUM
  16. OLANZAPINE. [Concomitant]
     Active Substance: OLANZAPINE

REACTIONS (3)
  - Blood creatinine increased [None]
  - Renal injury [None]
  - Renal impairment [None]

NARRATIVE: CASE EVENT DATE: 20180410
